FAERS Safety Report 10520528 (Version 10)
Quarter: 2016Q4

REPORT INFORMATION
  Report Type: Report from Study
  Country: US (occurrence: US)
  Receive Date: 20141015
  Receipt Date: 20161217
  Transmission Date: 20170206
  Serious: Yes (Other)
  Sender: FDA-Public Use
  Company Number: PHHY2014US134066

PATIENT
  Age: 0 Day
  Sex: Female
  Weight: 2.52 kg

DRUGS (35)
  1. PROAIR (FLUTICASONE PROPIONATE) [Suspect]
     Active Substance: FLUTICASONE PROPIONATE
     Indication: FOETAL EXPOSURE DURING PREGNANCY
     Dosage: MATERNAL DOSE 2.0 PUFFS TWICE DAILY
     Route: 064
     Dates: start: 20060101
  2. SERTRALINE [Concomitant]
     Active Substance: SERTRALINE HYDROCHLORIDE
     Indication: FOETAL EXPOSURE DURING PREGNANCY
     Route: 064
  3. IBUPROFEN. [Concomitant]
     Active Substance: IBUPROFEN
     Indication: FOETAL EXPOSURE DURING PREGNANCY
     Dosage: MATERNAL DOSE- 800 MG, PRN (Q8H)
     Route: 064
     Dates: start: 20140725, end: 20141219
  4. DERMOPLAST PAIN RELIEVING [Concomitant]
     Active Substance: BENZOCAINE\MENTHOL
     Indication: FOETAL EXPOSURE DURING PREGNANCY
     Dosage: MOTHER DOSE: PRN
     Route: 064
     Dates: start: 20140725, end: 20140727
  5. HYDROCORTISON [Concomitant]
     Active Substance: HYDROCORTISONE
     Indication: FOETAL EXPOSURE DURING PREGNANCY
     Dosage: MOTHER DOSE: PRN
     Route: 064
     Dates: start: 20140725, end: 20140727
  6. RINGER ACETATE [Concomitant]
     Indication: FOETAL EXPOSURE DURING PREGNANCY
     Dosage: MOTHER DOSE: 1000 ML, UNK
     Route: 064
     Dates: start: 20140725
  7. ZOVIRAX [Concomitant]
     Active Substance: ACYCLOVIR
     Indication: FOETAL EXPOSURE DURING PREGNANCY
     Dosage: MOTHER DOSE: 400 MG, BID
     Route: 064
     Dates: start: 20140724, end: 20140725
  8. GILENYA [Suspect]
     Active Substance: FINGOLIMOD HYDROCHLORIDE
     Indication: FOETAL EXPOSURE DURING PREGNANCY
     Dosage: MATERNAL DOSE: 0.5MG/DAY
     Route: 064
     Dates: start: 20130201, end: 20131210
  9. AMANTADINE [Concomitant]
     Active Substance: AMANTADINE
     Indication: FOETAL EXPOSURE DURING PREGNANCY
     Route: 064
  10. ALBUTEROL. [Concomitant]
     Active Substance: ALBUTEROL
     Indication: FOETAL EXPOSURE DURING PREGNANCY
     Dosage: MOTHER DOSE-2.5 MG, PRN
     Route: 064
     Dates: start: 20110824, end: 20141219
  11. COMPAZINE [Concomitant]
     Active Substance: PROCHLORPERAZINE MALEATE
     Indication: FOETAL EXPOSURE DURING PREGNANCY
     Dosage: MOTHER DOSE: 10 MG, PRN
     Route: 064
     Dates: start: 20140725, end: 20140727
  12. PITOCIN [Concomitant]
     Active Substance: OXYTOCIN
     Indication: FOETAL EXPOSURE DURING PREGNANCY
     Dosage: MOTHER DOSE: 500 ML/MIN, PRN
     Route: 064
     Dates: start: 20140725, end: 20140725
  13. SYMBICORT [Suspect]
     Active Substance: BUDESONIDE\FORMOTEROL FUMARATE DIHYDRATE
     Indication: FOETAL EXPOSURE DURING PREGNANCY
     Dosage: MATERNAL DOSE 2 PUFFS TWICE DAILY
     Route: 064
     Dates: start: 20130201
  14. IRON [Suspect]
     Active Substance: IRON
     Indication: FOETAL EXPOSURE DURING PREGNANCY
     Dosage: MATERNAL DOSE:28 MG ONCE DAILY
     Route: 064
     Dates: start: 20140613
  15. COPAXONE [Concomitant]
     Active Substance: GLATIRAMER ACETATE
     Indication: FOETAL EXPOSURE DURING PREGNANCY
     Route: 064
  16. AMPYRA [Concomitant]
     Active Substance: DALFAMPRIDINE
     Indication: FOETAL EXPOSURE DURING PREGNANCY
     Route: 064
  17. PSYLLIUM [Concomitant]
     Active Substance: PLANTAGO SEED
     Indication: FOETAL EXPOSURE DURING PREGNANCY
     Dosage: MOTHER DOSE: QD
     Route: 064
     Dates: end: 20141219
  18. PRENATAL [Concomitant]
     Active Substance: VITAMINS
     Indication: FOETAL EXPOSURE DURING PREGNANCY
     Dosage: MOTHER DOSE: 800 UG, QD
     Route: 064
     Dates: start: 20140725, end: 20140725
  19. PREDNISONE. [Concomitant]
     Active Substance: PREDNISONE
     Indication: FOETAL EXPOSURE DURING PREGNANCY
     Route: 064
  20. BENADRYL [Concomitant]
     Active Substance: DIPHENHYDRAMINE HYDROCHLORIDE
     Indication: FOETAL EXPOSURE DURING PREGNANCY
     Dosage: MOTHER DOSE: 25 MG, QD
     Route: 064
     Dates: start: 20140726, end: 20140727
  21. FENTANYL CITRATE AND ROPIVACAINE HCL [Concomitant]
     Indication: FOETAL EXPOSURE DURING PREGNANCY
     Dosage: MOTHER DOSE: UNK
     Route: 064
     Dates: start: 20140725, end: 20140725
  22. CYTOTEC [Concomitant]
     Active Substance: MISOPROSTOL
     Indication: FOETAL EXPOSURE DURING PREGNANCY
     Dosage: MOTHER DOSE: 25 UG, PRN
     Route: 064
     Dates: start: 20140724
  23. REBIF [Suspect]
     Active Substance: INTERFERON BETA-1A
     Indication: FOETAL EXPOSURE DURING PREGNANCY
     Dosage: MATERNAL DOSE
     Route: 064
  24. PRENATAL [Suspect]
     Active Substance: VITAMINS
     Indication: FOETAL EXPOSURE DURING PREGNANCY
     Dosage: MATERNAL DOSE, ONCE DAILY
     Route: 064
     Dates: start: 20131208
  25. PEPCID [Concomitant]
     Active Substance: FAMOTIDINE
     Indication: FOETAL EXPOSURE DURING PREGNANCY
     Route: 064
  26. METHERGINE [Concomitant]
     Active Substance: METHYLERGONOVINE MALEATE
     Indication: FOETAL EXPOSURE DURING PREGNANCY
     Dosage: MOTHER DOSE: 0.2 MG, PRN (Q6H)
     Route: 064
     Dates: start: 20140726, end: 20140727
  27. NEOSYNEPHRINE [Concomitant]
     Active Substance: PHENYLEPHRINE HYDROCHLORIDE
     Indication: FOETAL EXPOSURE DURING PREGNANCY
     Dosage: MOTHER DOSE: 100 MCG/ML, PRN
     Route: 064
     Dates: start: 20141125, end: 20141125
  28. ZOFRAN [Concomitant]
     Active Substance: ONDANSETRON HYDROCHLORIDE
     Indication: FOETAL EXPOSURE DURING PREGNANCY
     Dosage: MOTHER DOSE: 4 MG, (4 MG/2 ML), PRN
     Route: 064
     Dates: start: 20140724, end: 20140725
  29. CALCIUM CARBONATE. [Concomitant]
     Active Substance: CALCIUM CARBONATE
     Indication: FOETAL EXPOSURE DURING PREGNANCY
     Dosage: MOTHER DOSE: 500 MG, QD
     Route: 064
     Dates: start: 20140724, end: 20140725
  30. ACICLOVIR [Suspect]
     Active Substance: ACYCLOVIR
     Indication: FOETAL EXPOSURE DURING PREGNANCY
     Dosage: MATERNAL DOSE: 400 MG, BID
     Route: 064
     Dates: start: 20140614
  31. WITCH HAZEL. [Concomitant]
     Active Substance: WITCH HAZEL
     Indication: FOETAL EXPOSURE DURING PREGNANCY
     Dosage: MOTHER DOSE: PRN
     Route: 064
     Dates: start: 20140725, end: 20140727
  32. ACETAMINOPHEN. [Concomitant]
     Active Substance: ACETAMINOPHEN
     Indication: FOETAL EXPOSURE DURING PREGNANCY
     Dosage: MOTHER DOSE: 325 MG, PRN
     Route: 064
  33. DEMEROL [Concomitant]
     Active Substance: MEPERIDINE HYDROCHLORIDE
     Indication: FOETAL EXPOSURE DURING PREGNANCY
     Dosage: MOTHER DOSE: 50 MG, QD
     Route: 064
     Dates: start: 20140725, end: 20140725
  34. AVONEX [Suspect]
     Active Substance: INTERFERON BETA-1A
     Indication: FOETAL EXPOSURE DURING PREGNANCY
     Dosage: MATERNAL DOSE
     Route: 064
     Dates: start: 20140614
  35. FERROUS SULFATE. [Concomitant]
     Active Substance: FERROUS SULFATE
     Indication: FOETAL EXPOSURE DURING PREGNANCY
     Dosage: MOTHER DOSE:1 DF, QD
     Route: 064
     Dates: end: 20141219

REACTIONS (3)
  - Foetal exposure during pregnancy [Unknown]
  - Cardiac murmur [Not Recovered/Not Resolved]
  - Premature baby [Unknown]

NARRATIVE: CASE EVENT DATE: 20140724
